FAERS Safety Report 7003962-1 (Version None)
Quarter: 2010Q3

REPORT INFORMATION
  Report Type: 
  Country: None (occurrence: None)
  Receive Date: 20100920
  Receipt Date: 20100105
  Transmission Date: 20110219
  Serious: No
  Sender: FDA-Public Use
  Company Number: US-WYE-H12890110

PATIENT
  Sex: Female
  Weight: 90.8 kg

DRUGS (1)
  1. PRISTIQ [Suspect]
     Indication: DEPRESSION
     Route: 048
     Dates: start: 20091101

REACTIONS (4)
  - CHOKING [None]
  - DYSPHAGIA [None]
  - PRODUCT SHAPE ISSUE [None]
  - RETCHING [None]
